FAERS Safety Report 14055675 (Version 5)
Quarter: 2017Q4

REPORT INFORMATION
  Report Type: Spontaneous
  Country: GB (occurrence: GB)
  Receive Date: 20171006
  Receipt Date: 20171207
  Transmission Date: 20180321
  Serious: Yes (Other)
  Sender: FDA-Public Use
  Company Number: GB-009507513-1710GBR000138

PATIENT
  Age: 29 Year
  Sex: Female
  Weight: 50 kg

DRUGS (1)
  1. NEXPLANON [Suspect]
     Active Substance: ETONOGESTREL
     Dosage: 1 DF, UNK, SITED 10 CM ABOVE THE MEDIAL EPICONDYLE BELOW THE BICIPITAL GROOVE OVER TRICEPS
     Route: 059
     Dates: start: 20160704, end: 20170623

REACTIONS (9)
  - Device difficult to use [Recovered/Resolved]
  - Procedural complication [Recovering/Resolving]
  - Surgery [Recovered/Resolved]
  - Paraesthesia [Unknown]
  - Difficulty removing drug implant [Recovered/Resolved]
  - Complication of device removal [Recovered/Resolved]
  - Vaginal haemorrhage [Unknown]
  - General anaesthesia [Recovered/Resolved]
  - Ulnar nerve injury [Recovering/Resolving]

NARRATIVE: CASE EVENT DATE: 20170615
